FAERS Safety Report 17899416 (Version 1)
Quarter: 2020Q2

REPORT INFORMATION
  Report Type: Spontaneous
  Country: US (occurrence: US)
  Receive Date: 20200615
  Receipt Date: 20200615
  Transmission Date: 20200714
  Serious: Yes (Other)
  Sender: FDA-Public Use
  Company Number: None

PATIENT
  Age: 62 Year
  Sex: Male
  Weight: 135.9 kg

DRUGS (22)
  1. REMDESIVIR. [Suspect]
     Active Substance: REMDESIVIR
     Indication: COVID-19
     Route: 042
     Dates: start: 20200607, end: 20200611
  2. ALBUTEROL SULFATE HFA INHALER [Concomitant]
     Dates: start: 20200605
  3. HYDROMORPHONE [Concomitant]
     Active Substance: HYDROMORPHONE
     Dates: start: 20200611
  4. NOREPINEPHRINE. [Concomitant]
     Active Substance: NOREPINEPHRINE
     Dates: start: 20200613
  5. MAGNESIUM SULFATE, POTASSIUM CHLORIDE IN PRISMASATE BGK 4/2.5 DIALYSIS [Concomitant]
     Dates: start: 20200615
  6. OMPRAZOLE [Concomitant]
     Active Substance: OMEPRAZOLE
     Dates: start: 20200612
  7. ASPIRIN. [Concomitant]
     Active Substance: ASPIRIN
     Dates: start: 20101026, end: 20200604
  8. PRISMASOL BGK 2/3.5 REPLACEMENT SOLUTION [Concomitant]
     Dates: start: 20200612
  9. ROCURONIUM [Concomitant]
     Active Substance: ROCURONIUM BROMIDE
     Dates: start: 20200611
  10. PROPOFOL. [Concomitant]
     Active Substance: PROPOFOL
     Dates: start: 20200611
  11. EPOPROSTENOL-FLOAN [Concomitant]
     Dates: start: 20200611
  12. INSULIN LISPRO [Concomitant]
     Active Substance: INSULIN LISPRO
     Dates: start: 20200611
  13. MIDAZOLAM. [Concomitant]
     Active Substance: MIDAZOLAM
     Dates: start: 20200611
  14. SODIUM PHOSPHATE [Concomitant]
     Active Substance: SODIUM PHOSPHATE
     Dates: start: 20200612
  15. ALBUTEROL NEBULIZER [Concomitant]
     Active Substance: ALBUTEROL
     Dates: start: 20200605
  16. INSULIN REGULAR [Concomitant]
     Active Substance: INSULIN NOS
     Dates: start: 20200611
  17. HEPARIN [Concomitant]
     Active Substance: HEPARIN SODIUM
     Dates: start: 20200611
  18. LINEZOLID. [Concomitant]
     Active Substance: LINEZOLID
     Dates: start: 20200612
  19. LISINOPRIL. [Concomitant]
     Active Substance: LISINOPRIL
     Dates: start: 20100605, end: 20200607
  20. REMDESIVIR. [Suspect]
     Active Substance: REMDESIVIR
     Indication: COVID-19
     Route: 042
     Dates: start: 20200606, end: 20200606
  21. MEROPENAM [Concomitant]
     Active Substance: MEROPENEM
     Dates: start: 20200612
  22. LIPASE-PROTEASE-AMYLASE [Concomitant]
     Dates: start: 20200614

REACTIONS (6)
  - Sepsis [None]
  - Pyrexia [None]
  - Acute kidney injury [None]
  - Bilirubin conjugated decreased [None]
  - Transaminases increased [None]
  - Hypotension [None]

NARRATIVE: CASE EVENT DATE: 20200612
